FAERS Safety Report 19381599 (Version 1)
Quarter: 2021Q2

REPORT INFORMATION
  Report Type: Spontaneous
  Country: US (occurrence: US)
  Receive Date: 20210607
  Receipt Date: 20210607
  Transmission Date: 20210717
  Serious: No
  Sender: FDA-Public Use
  Company Number: US-PFIZER INC-2021168250

PATIENT
  Sex: Male

DRUGS (2)
  1. DEPO?TESTOSTERONE [Suspect]
     Active Substance: TESTOSTERONE CYPIONATE
     Dosage: UNK
     Route: 030
  2. DEPO?TESTOSTERONE [Suspect]
     Active Substance: TESTOSTERONE CYPIONATE
     Dosage: HALF OF THE DOSE TWICE A WEEK
     Route: 058

REACTIONS (5)
  - Pruritus [Not Recovered/Not Resolved]
  - Injection site hypersensitivity [Not Recovered/Not Resolved]
  - Intentional product misuse [Unknown]
  - Product use issue [Unknown]
  - Urticaria [Not Recovered/Not Resolved]
